FAERS Safety Report 8077959-7 (Version None)
Quarter: 2012Q1

REPORT INFORMATION
  Report Type: 
  Country: None (occurrence: None)
  Receive Date: 20120127
  Receipt Date: 20110105
  Transmission Date: 20120608
  Serious: No
  Sender: FDA-Public Use
  Company Number: US-ABBOTT-11P-163-0695498-00

PATIENT
  Age: 55 Year
  Sex: Female

DRUGS (19)
  1. HUMIRA [Suspect]
     Indication: RHEUMATOID ARTHRITIS
     Dates: start: 20101222
  2. METHOTREXATE [Concomitant]
     Indication: RHEUMATOID ARTHRITIS
  3. OMEPRAZOLE [Concomitant]
     Indication: DYSPEPSIA
  4. OXYBUTYNIN [Concomitant]
     Indication: BLADDER DISORDER
  5. ZOCOR [Concomitant]
     Indication: BLOOD CHOLESTEROL
  6. MOBIC [Concomitant]
     Indication: PAIN
  7. LITHIUM CARBONATE [Concomitant]
     Indication: BIPOLAR DISORDER
  8. CHANTIX [Concomitant]
     Indication: EX-TOBACCO USER
  9. LISINOPRIL AND HYDROCHLOROTHIAZIDE [Concomitant]
     Indication: HYPERTENSION
  10. CLONAZEPAM [Concomitant]
     Indication: ANXIETY
  11. VENTOLIN [Concomitant]
     Indication: ASTHMA
     Route: 055
  12. LYRICA [Concomitant]
     Indication: FIBROMYALGIA
  13. TRAZODONE HCL [Concomitant]
     Indication: INSOMNIA
  14. CYMBALTA [Concomitant]
     Indication: DEPRESSION
  15. ASPIRIN [Concomitant]
     Indication: PRODUCT USED FOR UNKNOWN INDICATION
  16. VITAMIN D [Concomitant]
     Indication: PRODUCT USED FOR UNKNOWN INDICATION
  17. ALLOPURINOL [Concomitant]
     Indication: RHEUMATOID ARTHRITIS
  18. GEODON [Concomitant]
     Indication: BIPOLAR DISORDER
  19. PREDNISONE [Concomitant]
     Indication: ASTHMA

REACTIONS (3)
  - DRUG DOSE OMISSION [None]
  - WRONG TECHNIQUE IN DRUG USAGE PROCESS [None]
  - INCORRECT ROUTE OF DRUG ADMINISTRATION [None]
